FAERS Safety Report 4853882-3 (Version None)
Quarter: 2005Q4

REPORT INFORMATION
  Report Type: 
  Country: None (occurrence: None)
  Receive Date: 20051213
  Receipt Date: 20051202
  Transmission Date: 20060501
  Serious: Yes (Hospitalization, Other)
  Sender: FDA-Public Use
  Company Number: KII-2005-0020121

PATIENT
  Age: 53 Year
  Sex: Male

DRUGS (2)
  1. MS CONTIN [Suspect]
     Indication: DRUG USE FOR UNKNOWN INDICATION
     Dosage: ORAL
     Route: 048
  2. BENZODIAZEPINE DERIVATIVES (BENZOSIAZEPINE DERIVATIVES) [Suspect]
     Indication: DRUG USE FOR UNKNOWN INDICATION
     Dosage: ORAL
     Route: 048

REACTIONS (12)
  - AGITATION [None]
  - ATRIAL FIBRILLATION [None]
  - ATRIAL FLUTTER [None]
  - BLOOD PRESSURE DECREASED [None]
  - COMA [None]
  - DISORIENTATION [None]
  - HEART RATE INCREASED [None]
  - LETHARGY [None]
  - MULTIPLE DRUG OVERDOSE [None]
  - OXYGEN SATURATION DECREASED [None]
  - RESPIRATORY DEPRESSION [None]
  - SOMNOLENCE [None]
